FAERS Safety Report 8521501-0 (Version None)
Quarter: 2012Q3

REPORT INFORMATION
  Report Type: 
  Country: None (occurrence: None)
  Receive Date: 20120719
  Receipt Date: 20120710
  Transmission Date: 20120928
  Serious: Yes (Hospitalization, Other)
  Sender: FDA-Public Use
  Company Number: US-ASTRAZENECA-2012SE45088

PATIENT
  Age: 56 Year
  Sex: Female

DRUGS (2)
  1. PRILOSEC OTC [Suspect]
     Route: 048
  2. NEXIUM [Suspect]
     Route: 048

REACTIONS (6)
  - MEMORY IMPAIRMENT [None]
  - DYSPEPSIA [None]
  - ABDOMINAL DISCOMFORT [None]
  - BREAST CANCER [None]
  - CEREBROVASCULAR ACCIDENT [None]
  - MALAISE [None]
